FAERS Safety Report 4738955-8 (Version None)
Quarter: 2005Q3

REPORT INFORMATION
  Report Type: 
  Country: None (occurrence: None)
  Receive Date: 20050801
  Receipt Date: 20050224
  Transmission Date: 20060218
  Serious: Yes (Hospitalization)
  Sender: FDA-Public Use
  Company Number: 212715

PATIENT
  Age: 80 Year
  Sex: Female
  Weight: 53.1 kg

DRUGS (4)
  1. HERCEPTIN [Suspect]
     Indication: BREAST CANCER
     Dosage: 108 MG, Q3W, INTRAVENOUS;  108 MG, 1/WEEK, INTRAVENOUS
     Route: 042
     Dates: start: 20041101, end: 20041115
  2. HERCEPTIN [Suspect]
     Indication: BREAST CANCER
     Dosage: 108 MG, Q3W, INTRAVENOUS;  108 MG, 1/WEEK, INTRAVENOUS
     Route: 042
     Dates: start: 20041122, end: 20050117
  3. TAXOTERE [Concomitant]
  4. CARBOPLATIN [Concomitant]

REACTIONS (1)
  - PLEURAL EFFUSION [None]
